FAERS Safety Report 9732022 (Version 2)
Quarter: 2014Q1

REPORT INFORMATION
  Report Type: Report from Study
  Country: JP (occurrence: JP)
  Receive Date: 20131205
  Receipt Date: 20140113
  Transmission Date: 20141002
  Serious: Yes (Hospitalization)
  Sender: FDA-Public Use
  Company Number: JP-JNJFOC-20131118379

PATIENT
  Age: 71 Year
  Sex: Female
  Weight: 70 kg

DRUGS (23)
  1. SIMPONI [Suspect]
     Indication: RHEUMATOID ARTHRITIS
     Route: 058
     Dates: start: 20120412, end: 20120412
  2. SIMPONI [Suspect]
     Indication: RHEUMATOID ARTHRITIS
     Route: 058
     Dates: start: 20120314, end: 20120314
  3. SIMPONI [Suspect]
     Indication: RHEUMATOID ARTHRITIS
     Route: 058
     Dates: start: 20120216, end: 20120216
  4. SIMPONI [Suspect]
     Indication: RHEUMATOID ARTHRITIS
     Route: 058
     Dates: start: 20120126, end: 20120126
  5. SIMPONI [Suspect]
     Indication: RHEUMATOID ARTHRITIS
     Route: 058
     Dates: start: 20111228, end: 20111228
  6. SIMPONI [Suspect]
     Indication: RHEUMATOID ARTHRITIS
     Route: 058
     Dates: start: 20120705
  7. SIMPONI [Suspect]
     Indication: RHEUMATOID ARTHRITIS
     Route: 058
     Dates: start: 20120509, end: 20120509
  8. METHOTREXATE [Concomitant]
     Indication: RHEUMATOID ARTHRITIS
     Route: 065
     Dates: start: 20121226, end: 20121226
  9. PREDONINE [Concomitant]
     Indication: RHEUMATOID ARTHRITIS
     Route: 048
     Dates: start: 20120509
  10. PREDONINE [Concomitant]
     Indication: RHEUMATOID ARTHRITIS
     Route: 048
     Dates: start: 20111229, end: 20120508
  11. PREDONINE [Concomitant]
     Indication: RHEUMATOID ARTHRITIS
     Route: 048
     Dates: start: 20111227, end: 20111228
  12. PARIET [Concomitant]
     Indication: GASTRIC ULCER
     Route: 048
  13. WARFARIN [Concomitant]
     Indication: PERIPHERAL ARTERIAL OCCLUSIVE DISEASE
     Route: 048
  14. HALFDIGOXIN [Concomitant]
     Indication: HYPERTENSION
     Route: 048
  15. MAINTATE [Concomitant]
     Indication: HYPERTENSION
     Route: 048
  16. ADOAIR [Concomitant]
     Indication: CHRONIC OBSTRUCTIVE PULMONARY DISEASE
     Route: 055
  17. LENDORMIN [Concomitant]
     Indication: INSOMNIA
     Route: 048
  18. DEPAS [Concomitant]
     Indication: INSOMNIA
     Route: 048
  19. SPIRIVA [Concomitant]
     Indication: CHRONIC OBSTRUCTIVE PULMONARY DISEASE
     Route: 055
  20. MICARDIS [Concomitant]
     Indication: HYPERTENSION
     Route: 048
  21. PRORENAL [Concomitant]
     Indication: PERIPHERAL ARTERIAL OCCLUSIVE DISEASE
     Route: 048
  22. TACROLIMUS HYDRATE [Concomitant]
     Indication: RHEUMATOID ARTHRITIS
     Route: 065
     Dates: start: 20120619
  23. CELECOX [Concomitant]
     Indication: RHEUMATOID ARTHRITIS
     Route: 048
     Dates: start: 20120216

REACTIONS (3)
  - Appendicitis [Recovered/Resolved]
  - Appendicitis perforated [Recovered/Resolved]
  - Peritonitis [Recovered/Resolved]
